FAERS Safety Report 24732699 (Version 2)
Quarter: 2025Q3

REPORT INFORMATION
  Report Type: Spontaneous
  Country: US (occurrence: US)
  Receive Date: 20241213
  Receipt Date: 20250822
  Transmission Date: 20251020
  Serious: No
  Sender: IPSEN BIOPHARMACEUTICALS, INC.
  Company Number: US-IPSEN Group, Research and Development-2024-24960

PATIENT
  Age: 51 Year
  Sex: Female

DRUGS (4)
  1. BYLVAY [Suspect]
     Active Substance: ODEVIXIBAT
     Indication: Autoimmune hepatitis
     Dosage: 5X 400 MCG CAPSULES ONCE DAILY
     Dates: start: 202409
  2. BYLVAY [Suspect]
     Active Substance: ODEVIXIBAT
     Indication: Primary adrenal insufficiency
  3. BYLVAY [Suspect]
     Active Substance: ODEVIXIBAT
     Indication: Off label use
  4. BYLVAY [Suspect]
     Active Substance: ODEVIXIBAT
     Indication: Progressive familial intrahepatic cholestasis

REACTIONS (5)
  - Diarrhoea [Not Recovered/Not Resolved]
  - Off label use [Unknown]
  - Abdominal discomfort [Not Recovered/Not Resolved]
  - Diarrhoea [Not Recovered/Not Resolved]
  - Pruritus [Not Recovered/Not Resolved]

NARRATIVE: CASE EVENT DATE: 20240901
